FAERS Safety Report 8136556-5 (Version None)
Quarter: 2012Q1

REPORT INFORMATION
  Report Type: 
  Country: None (occurrence: None)
  Receive Date: 20120214
  Receipt Date: 20120208
  Transmission Date: 20120608
  Serious: Yes (Life-Threatening, Hospitalization)
  Sender: FDA-Public Use
  Company Number: PHHY2011DE73194

PATIENT
  Sex: Male
  Weight: 79 kg

DRUGS (1)
  1. AFINITOR [Suspect]
     Indication: RENAL CELL CARCINOMA
     Dosage: 10 MG, DAILY
     Route: 048
     Dates: start: 20110503

REACTIONS (3)
  - ACUTE MYOCARDIAL INFARCTION [None]
  - LEFT VENTRICULAR FAILURE [None]
  - MOUTH ULCERATION [None]
